FAERS Safety Report 12722641 (Version 1)
Quarter: 2016Q3

REPORT INFORMATION
  Report Type: Report from Study
  Country: IL (occurrence: IL)
  Receive Date: 20160907
  Receipt Date: 20160907
  Transmission Date: 20161109
  Serious: Yes (Hospitalization)
  Sender: FDA-Public Use
  Company Number: IL-SA-2016SA107638

PATIENT
  Age: 31 Year
  Sex: Male

DRUGS (1)
  1. CERDELGA [Suspect]
     Active Substance: ELIGLUSTAT
     Indication: GAUCHER^S DISEASE TYPE I
     Route: 048
     Dates: start: 2014, end: 20160810

REACTIONS (4)
  - Palpitations [Recovered/Resolved]
  - Rash [Recovered/Resolved]
  - Ventricular tachycardia [Recovered/Resolved]
  - Vasculitis [Recovered/Resolved]

NARRATIVE: CASE EVENT DATE: 201605
